FAERS Safety Report 21785957 (Version 4)
Quarter: 2023Q1

REPORT INFORMATION
  Report Type: Other
  Country: AU (occurrence: None)
  Receive Date: 20221228
  Receipt Date: 20230119
  Transmission Date: 20230417
  Serious: Yes (Hospitalization)
  Sender: FDA-Public Use
  Company Number: AU-ROCHE-3250145

PATIENT
  Age: 58 Year
  Sex: Male

DRUGS (3)
  1. OCREVUS [Suspect]
     Active Substance: OCRELIZUMAB
     Indication: Multiple sclerosis
     Dosage: LAST TREATMENT ON 16/JUN/2022 , 16/JAN/2023
     Route: 042
  2. NORFLOXACIN [Concomitant]
     Active Substance: NORFLOXACIN
     Indication: Cystitis
  3. LORATADINE [Concomitant]
     Active Substance: LORATADINE
     Indication: Seasonal allergy

REACTIONS (7)
  - Fall [Unknown]
  - Atrial fibrillation [Unknown]
  - COVID-19 [Unknown]
  - Influenza [Unknown]
  - Urinary tract infection [Unknown]
  - Seasonal allergy [Unknown]
  - Urinary tract infection [Recovered/Resolved]

NARRATIVE: CASE EVENT DATE: 20220501
